FAERS Safety Report 7232564-7 (Version None)
Quarter: 2011Q1

REPORT INFORMATION
  Report Type: 
  Country: None (occurrence: None)
  Receive Date: 20110112
  Receipt Date: 20110112
  Transmission Date: 20110831
  Serious: Yes (Hospitalization, Other)
  Sender: FDA-Public Use
  Company Number: None

PATIENT
  Age: 57 Year
  Sex: Female
  Weight: 56.6996 kg

DRUGS (1)
  1. PREDNISONE [Suspect]
     Indication: RASH
     Dosage: 60 MILLIGRAMS FOR 3 DAYS ETC.
     Dates: start: 20070905, end: 20070908

REACTIONS (6)
  - DEPRESSION [None]
  - PAIN [None]
  - SWELLING [None]
  - DISCOMFORT [None]
  - OSTEONECROSIS [None]
  - MUSCLE DISORDER [None]
